FAERS Safety Report 18386388 (Version 1)
Quarter: 2020Q4

REPORT INFORMATION
  Report Type: Spontaneous
  Country: US (occurrence: US)
  Receive Date: 20201015
  Receipt Date: 20201015
  Transmission Date: 20210114
  Serious: Yes (Death)
  Sender: FDA-Public Use
  Company Number: US-CURIUM-200300169

PATIENT
  Age: 60 Year
  Sex: Male

DRUGS (3)
  1. AMINOPHYLLINE. [Concomitant]
     Active Substance: AMINOPHYLLINE
     Indication: PRODUCT USED FOR UNKNOWN INDICATION
     Route: 065
  2. THALLOUS CHLORIDE TL 201 [Suspect]
     Active Substance: THALLOUS CHLORIDE TL-201
     Indication: SCAN MYOCARDIAL PERFUSION
     Route: 042
     Dates: start: 20030106, end: 20030106
  3. PERSANTINE [Concomitant]
     Active Substance: DIPYRIDAMOLE
     Indication: CARDIAC STRESS TEST
     Route: 042
     Dates: start: 20030106, end: 20030106

REACTIONS (4)
  - Myocardial infarction [Fatal]
  - Acute kidney injury [Fatal]
  - Cardiac failure congestive [Fatal]
  - Respiratory failure [Fatal]
